FAERS Safety Report 8193858-4 (Version None)
Quarter: 2012Q1

REPORT INFORMATION
  Report Type: 
  Country: None (occurrence: None)
  Receive Date: 20120308
  Receipt Date: 20120227
  Transmission Date: 20120608
  Serious: Yes (Hospitalization, Other)
  Sender: FDA-Public Use
  Company Number: US-ELI_LILLY_AND_COMPANY-US201201006063

PATIENT
  Age: 84 Year
  Sex: Female
  Weight: 50.34 kg

DRUGS (10)
  1. ZOCOR [Concomitant]
     Dosage: 40 MG, QD
     Route: 065
     Dates: start: 20111004
  2. XANAX [Concomitant]
     Dosage: 0.25 MG, BID
     Route: 065
     Dates: start: 20110728
  3. CALTRATE                           /00751519/ [Concomitant]
     Dosage: 1500 MG, BID
     Route: 065
     Dates: start: 20111021
  4. AGGRENOX [Concomitant]
     Dosage: UNK, BID
     Route: 065
     Dates: start: 20111004
  5. MULTI-VITAMIN [Concomitant]
     Dosage: UNK, QD
     Route: 065
     Dates: start: 20110509
  6. ASPIRIN [Concomitant]
     Dosage: 81 MG, QD
     Route: 065
     Dates: start: 20110509
  7. FORTEO [Suspect]
     Indication: OSTEOPOROSIS
     Dosage: UNK UNK, UNKNOWN
     Route: 065
     Dates: start: 20111114
  8. CYMBALTA [Concomitant]
     Dosage: 30 MG, QD
     Route: 065
     Dates: start: 20111021
  9. VITAMIN D [Concomitant]
     Dosage: UNK, WEEKLY (1/W)
     Route: 065
     Dates: start: 20111107
  10. ARICEPT [Concomitant]
     Dosage: 10 MG, QD
     Route: 065
     Dates: start: 20111028

REACTIONS (2)
  - HIP FRACTURE [None]
  - FALL [None]
